FAERS Safety Report 18052068 (Version 1)
Quarter: 2020Q3

REPORT INFORMATION
  Report Type: Spontaneous
  Country: US (occurrence: US)
  Receive Date: 20200722
  Receipt Date: 20200722
  Transmission Date: 20201103
  Serious: Yes (Hospitalization)
  Sender: FDA-Public Use
  Company Number: US-EMD SERONO-9175272

PATIENT
  Sex: Female

DRUGS (1)
  1. REBIF [Suspect]
     Active Substance: INTERFERON BETA-1A
     Indication: PRODUCT USED FOR UNKNOWN INDICATION
     Dosage: PATIENT WAS ON REBIF (INTERFERON BETA?1A), AND TOOK IT FOR FOUR TO FIVE YEARS

REACTIONS (3)
  - Clostridium difficile infection [Recovering/Resolving]
  - Staphylococcal infection [Recovering/Resolving]
  - Injection site calcification [Unknown]
